FAERS Safety Report 21644345 (Version 1)
Quarter: 2022Q4

REPORT INFORMATION
  Report Type: Spontaneous
  Country: US (occurrence: US)
  Receive Date: 20221125
  Receipt Date: 20221125
  Transmission Date: 20230113
  Serious: No
  Sender: FDA-Public Use
  Company Number: US-SEPTODONT-2022006785

PATIENT
  Age: 55 Year
  Sex: Male

DRUGS (1)
  1. BUPIVACAINE HYDROCHLORIDE\EPINEPHRINE BITARTRATE [Suspect]
     Active Substance: BUPIVACAINE HYDROCHLORIDE\EPINEPHRINE BITARTRATE
     Indication: Dental local anaesthesia
     Route: 004

REACTIONS (1)
  - Drug ineffective [Recovered/Resolved]
